FAERS Safety Report 15657594 (Version 1)
Quarter: 2018Q4

REPORT INFORMATION
  Report Type: Spontaneous
  Country: US (occurrence: US)
  Receive Date: 20181126
  Receipt Date: 20181126
  Transmission Date: 20190205
  Serious: Yes (Other)
  Sender: FDA-Public Use
  Company Number: US-NOVOPROD-597413

PATIENT
  Age: 61 Year
  Sex: Male

DRUGS (3)
  1. NOVOLOG MIX 70/30 [Suspect]
     Active Substance: INSULIN ASPART
     Indication: TYPE 1 DIABETES MELLITUS
     Dosage: 30 UNITS IN THE AM, 28 UNITS WITH DINNER
     Route: 058
     Dates: start: 1992
  2. NOVOLOG MIX 70/30 [Suspect]
     Active Substance: INSULIN ASPART
     Dosage: 34 U, BID IN THE AM AND WITH DINNER
     Route: 058
     Dates: end: 2018
  3. NOVOLOG MIX 70/30 [Suspect]
     Active Substance: INSULIN ASPART
     Dosage: 34 U, BID IN THE AM AND WITH DINNER
     Route: 058
     Dates: end: 2018

REACTIONS (9)
  - Blood glucose increased [Not Recovered/Not Resolved]
  - Liquid product physical issue [Not Recovered/Not Resolved]
  - Drug ineffective [Unknown]
  - Weight decreased [Not Recovered/Not Resolved]
  - Dyspepsia [Recovered/Resolved]
  - Hunger [Not Recovered/Not Resolved]
  - Decreased appetite [Not Recovered/Not Resolved]
  - Product colour issue [Unknown]
  - Product storage error [Unknown]

NARRATIVE: CASE EVENT DATE: 2018
